FAERS Safety Report 25663309 (Version 2)
Quarter: 2025Q3

REPORT INFORMATION
  Report Type: Spontaneous
  Country: EU (occurrence: EU)
  Receive Date: 20250811
  Receipt Date: 20250822
  Transmission Date: 20251020
  Serious: Yes (Hospitalization, Other)
  Sender: KEDRION
  Company Number: EU-KEDRION-010368

PATIENT
  Age: 1 Year
  Sex: Male

DRUGS (3)
  1. COAGADEX [Suspect]
     Active Substance: COAGULATION FACTOR X HUMAN
     Indication: Factor X deficiency
     Route: 042
     Dates: start: 20250715
  2. COAGADEX [Suspect]
     Active Substance: COAGULATION FACTOR X HUMAN
     Indication: Factor X deficiency
     Route: 042
     Dates: start: 20241001
  3. COAGADEX [Suspect]
     Active Substance: COAGULATION FACTOR X HUMAN
     Indication: Factor X deficiency
     Route: 042

REACTIONS (1)
  - Vascular device occlusion [Not Recovered/Not Resolved]

NARRATIVE: CASE EVENT DATE: 20250722
